FAERS Safety Report 8315762-0 (Version None)
Quarter: 2012Q2

REPORT INFORMATION
  Report Type: 
  Country: None (occurrence: None)
  Receive Date: 20120426
  Receipt Date: 20120423
  Transmission Date: 20120825
  Serious: Yes (Other)
  Sender: FDA-Public Use
  Company Number: NL-AMGEN-NLDSP2012004103

PATIENT
  Age: 62 Year
  Sex: Male

DRUGS (2)
  1. ARANESP [Suspect]
     Indication: RENAL FAILURE
     Dosage: 200 MUG, QWK
     Route: 042
  2. NEORECORMON [Concomitant]
     Dosage: UNK

REACTIONS (3)
  - HAEMOGLOBIN DECREASED [None]
  - THERAPEUTIC RESPONSE DECREASED [None]
  - NORMOCHROMIC NORMOCYTIC ANAEMIA [None]
